FAERS Safety Report 9459204 (Version 1)
Quarter: 2013Q3

REPORT INFORMATION
  Report Type: Report from Study
  Country: BR (occurrence: BR)
  Receive Date: 20130814
  Receipt Date: 20130814
  Transmission Date: 20140515
  Serious: Yes (Hospitalization)
  Sender: FDA-Public Use
  Company Number: PHHY2013BR058679

PATIENT
  Sex: Female

DRUGS (9)
  1. FORASEQ [Suspect]
     Indication: ASTHMA
     Dosage: 2 DF (2 DOSES A DAY), QD
     Dates: start: 2008
  2. LORATADINE [Suspect]
     Dosage: 1 DF, QD
     Route: 048
  3. NASONEX [Concomitant]
     Dosage: UNK UKN, PRN
  4. DONAREN [Concomitant]
     Indication: INSOMNIA
     Dosage: 1 DF, QD
     Route: 048
  5. DONAREN [Concomitant]
     Indication: DEPRESSION
  6. DRUG THERAPY NOS [Concomitant]
     Indication: BACK PAIN
     Dosage: UNK UKN, UNK
  7. PANTOPRAZOLE [Concomitant]
     Indication: GASTRITIS
     Dosage: 1 DF, QD (DAILY IN FASTING)
     Route: 048
  8. PURAN T4 [Concomitant]
     Indication: HYPOTHYROIDISM
     Dosage: 1 DF, QD (DAILY IN FASTING)
     Route: 048
  9. HYDROCHLOROTHIAZIDE [Concomitant]
     Indication: HYPERTENSION
     Dosage: 1 DF, QD
     Route: 048

REACTIONS (3)
  - Abdominal pain upper [Not Recovered/Not Resolved]
  - Asthma [Recovering/Resolving]
  - Expired drug administered [Unknown]
